FAERS Safety Report 11437141 (Version 4)
Quarter: 2015Q3

REPORT INFORMATION
  Report Type: Spontaneous
  Country: US (occurrence: US)
  Receive Date: 20150831
  Receipt Date: 20150928
  Transmission Date: 20151125
  Serious: Yes (Other)
  Sender: FDA-Public Use
  Company Number: US-GLAXOSMITHKLINE-US2015GSK123929

PATIENT
  Age: 36 Year
  Sex: Male

DRUGS (1)
  1. VENTOLIN HFA [Suspect]
     Active Substance: ALBUTEROL SULFATE
     Indication: ANXIETY
     Dosage: UNK
     Dates: start: 2013

REACTIONS (4)
  - Cerebrovascular accident [Unknown]
  - Amnesia [Unknown]
  - Epilepsy [Unknown]
  - Depersonalisation [Unknown]

NARRATIVE: CASE EVENT DATE: 201501
